FAERS Safety Report 7632333-X (Version None)
Quarter: 2011Q3

REPORT INFORMATION
  Report Type: 
  Country: None (occurrence: None)
  Receive Date: 20110725
  Receipt Date: 20100803
  Transmission Date: 20111222
  Serious: No
  Sender: FDA-Public Use
  Company Number: US-BRISTOL-MYERS SQUIBB COMPANY-15224066

PATIENT
  Age: 60 Year
  Sex: Male

DRUGS (10)
  1. TYLENOL-500 [Concomitant]
     Indication: PAIN
  2. HYDROCHLOROTHIAZIDE [Concomitant]
  3. COUMADIN [Suspect]
     Indication: DEEP VEIN THROMBOSIS
  4. COUMADIN [Suspect]
     Indication: PULMONARY EMBOLISM
  5. LOVENOX [Suspect]
     Indication: PULMONARY EMBOLISM
     Route: 065
     Dates: start: 20100701, end: 20100712
  6. FERROUS SULFATE TAB [Concomitant]
     Indication: MEDICAL DIET
  7. ATENOLOL [Concomitant]
  8. CALCIUM CHANNEL BLOCKER [Concomitant]
  9. LOVENOX [Suspect]
     Indication: DEEP VEIN THROMBOSIS
     Route: 065
     Dates: start: 20100701, end: 20100712
  10. BUPROPION HCL [Concomitant]
     Indication: DEPRESSION

REACTIONS (5)
  - OEDEMA [None]
  - PYREXIA [None]
  - CONTUSION [None]
  - FALL [None]
  - DISCOMFORT [None]
